FAERS Safety Report 12456040 (Version 1)
Quarter: 2016Q2

REPORT INFORMATION
  Report Type: Spontaneous
  Country: DE (occurrence: DE)
  Receive Date: 20160610
  Receipt Date: 20160610
  Transmission Date: 20160815
  Serious: Yes (Life-Threatening, Hospitalization, Disabling, Other)
  Sender: FDA-Public Use
  Company Number: DE-PFIZER INC-2016290654

PATIENT
  Sex: Female
  Weight: 72 kg

DRUGS (1)
  1. FEMIGOA [Suspect]
     Active Substance: ESTRADIOL
     Indication: CONTRACEPTION
     Dosage: 1 DF, 1X/DAY
     Route: 048
     Dates: start: 2004, end: 20071128

REACTIONS (4)
  - Cardiac arrest [Recovered/Resolved with Sequelae]
  - Pulmonary embolism [Recovered/Resolved with Sequelae]
  - Brain injury [Recovered/Resolved with Sequelae]
  - Paget-Schroetter syndrome [Recovered/Resolved with Sequelae]

NARRATIVE: CASE EVENT DATE: 20071128
